FAERS Safety Report 9010799 (Version 1)
Quarter: 2013Q1

REPORT INFORMATION
  Report Type: Spontaneous
  Country: IT (occurrence: IT)
  Receive Date: 20130109
  Receipt Date: 20130109
  Transmission Date: 20140127
  Serious: Yes (Death, Hospitalization)
  Sender: FDA-Public Use
  Company Number: IT-SANOFI-AVENTIS-2013SA000612

PATIENT
  Age: 2 Day
  Sex: Male
  Weight: 2.01 kg

DRUGS (6)
  1. FASTURTEC [Suspect]
     Indication: BLOOD URIC ACID INCREASED
     Route: 065
  2. OXYGEN [Concomitant]
  3. LUNG SURFACTANTS [Concomitant]
     Route: 039
  4. GENTAMICIN [Concomitant]
     Dosage: EVERY 24 HOURS
     Route: 042
  5. AMPICILLIN [Concomitant]
     Route: 042
  6. DOPAMINE [Concomitant]

REACTIONS (11)
  - Haemolytic anaemia [Fatal]
  - Off label use [Fatal]
  - Oxygen saturation decreased [Fatal]
  - Haematocrit decreased [Fatal]
  - Respiratory failure [Fatal]
  - Acidosis [Fatal]
  - Hyperbilirubinaemia [Fatal]
  - Skin discolouration [Fatal]
  - Chromaturia [Fatal]
  - Hypoxia [Fatal]
  - Hypotension [Fatal]
